FAERS Safety Report 7126247-1 (Version None)
Quarter: 2010Q4

REPORT INFORMATION
  Report Type: 
  Country: None (occurrence: None)
  Receive Date: 20101129
  Receipt Date: 20101122
  Transmission Date: 20110411
  Serious: Yes (Hospitalization)
  Sender: FDA-Public Use
  Company Number: US-BRISTOL-MYERS SQUIBB COMPANY-15400237

PATIENT
  Age: 54 Year
  Sex: Female
  Weight: 80 kg

DRUGS (7)
  1. CYTOXAN [Suspect]
     Indication: BREAST CANCER
     Route: 042
     Dates: start: 20100804, end: 20100804
  2. ADRIAMYCIN PFS [Suspect]
     Indication: BREAST CANCER
  3. TAXOTERE [Suspect]
     Indication: BREAST CANCER
     Dosage: LOT DOA615,APR2013: LOT DOA585,MAR2013.
     Route: 041
     Dates: start: 20100804, end: 20100804
  4. INDERAL LA [Concomitant]
  5. MAXZIDE [Concomitant]
  6. OMEPRAZOLE [Concomitant]
  7. LACTOBACILLUS ACIDOPHILUS [Concomitant]
     Indication: PROBIOTIC THERAPY

REACTIONS (4)
  - ABDOMINAL PAIN [None]
  - COLITIS [None]
  - INTESTINAL PERFORATION [None]
  - PYREXIA [None]
